FAERS Safety Report 22355314 (Version 1)
Quarter: 2023Q2

REPORT INFORMATION
  Report Type: Report from Study
  Country: MX (occurrence: MX)
  Receive Date: 20230523
  Receipt Date: 20230523
  Transmission Date: 20230722
  Serious: Yes (Disabling)
  Sender: FDA-Public Use
  Company Number: MX-ABBVIE-5175855

PATIENT
  Sex: Female

DRUGS (1)
  1. HUMIRA [Suspect]
     Active Substance: ADALIMUMAB
     Indication: Rheumatoid arthritis
     Dosage: STRENGTH: 40 MILLIGRAM
     Route: 058
     Dates: start: 20181126

REACTIONS (5)
  - Mobility decreased [Recovering/Resolving]
  - Immunodeficiency [Not Recovered/Not Resolved]
  - Intentional product misuse [Unknown]
  - Arthralgia [Recovering/Resolving]
  - Loss of personal independence in daily activities [Unknown]
